FAERS Safety Report 9422448 (Version 1)
Quarter: 2013Q3

REPORT INFORMATION
  Report Type: Spontaneous
  Country: US (occurrence: None)
  Receive Date: 20130725
  Receipt Date: 20130725
  Transmission Date: 20140515
  Serious: No
  Sender: FDA-Public Use
  Company Number: None

PATIENT
  Age: 50 Year
  Sex: Female
  Weight: 79.38 kg

DRUGS (2)
  1. AZELASTINE HYDROCHLORIDE [Suspect]
     Indication: EYE ALLERGY
     Dosage: 0.05%?1 DROP EACH EYE?1 DROP BOTH EYES EVERY MORNING?EYE DROPS
     Dates: start: 20130720, end: 20130720
  2. NAPROXEN [Concomitant]

REACTIONS (5)
  - Feeling abnormal [None]
  - Dysgeusia [None]
  - Nausea [None]
  - Influenza like illness [None]
  - Dizziness [None]
